FAERS Safety Report 11124335 (Version 1)
Quarter: 2015Q2

REPORT INFORMATION
  Report Type: Spontaneous
  Country: US (occurrence: None)
  Receive Date: 20150519
  Receipt Date: 20150519
  Transmission Date: 20150821
  Serious: Yes (Life-Threatening, Hospitalization)
  Sender: FDA-Public Use
  Company Number: None

PATIENT
  Age: 72 Year
  Sex: Female

DRUGS (9)
  1. LORAZEPAM. [Concomitant]
     Active Substance: LORAZEPAM
  2. DULOXETINE [Concomitant]
     Active Substance: DULOXETINE
  3. ONDANSERTRON HYDROCHLORIDE [Concomitant]
     Active Substance: ONDANSETRON HYDROCHLORIDE
  4. FONDAPARINUX [Concomitant]
     Active Substance: FONDAPARINUX
  5. LACTULOSE. [Concomitant]
     Active Substance: LACTULOSE
  6. VOTRIENT [Suspect]
     Active Substance: PAZOPANIB HYDROCHLORIDE
     Indication: UTERINE CANCER
     Route: 048
     Dates: start: 20150225, end: 20150420
  7. LEVOTHYROXINE [Concomitant]
     Active Substance: LEVOTHYROXINE
  8. PAZOPANIB [Concomitant]
     Active Substance: PAZOPANIB
  9. CITALOPRAM [Concomitant]
     Active Substance: CITALOPRAM HYDROBROMIDE

REACTIONS (25)
  - Hypersomnia [None]
  - Hypokinesia [None]
  - Pallor [None]
  - Urinary incontinence [None]
  - Asthenia [None]
  - VIIth nerve paralysis [None]
  - Hemiparesis [None]
  - Acute kidney injury [None]
  - Pneumonia [None]
  - Metabolic acidosis [None]
  - Pupillary reflex impaired [None]
  - Lethargy [None]
  - Haemoconcentration [None]
  - Lactic acidosis [None]
  - Aphasia [None]
  - Vomiting [None]
  - Eye movement disorder [None]
  - Seizure [None]
  - Pleural effusion [None]
  - Dry skin [None]
  - Unresponsive to stimuli [None]
  - Peripheral coldness [None]
  - Troponin increased [None]
  - Pyrexia [None]
  - Faecal incontinence [None]

NARRATIVE: CASE EVENT DATE: 20150421
